FAERS Safety Report 4868918-3 (Version None)
Quarter: 2005Q4

REPORT INFORMATION
  Report Type: 
  Country: None (occurrence: None)
  Receive Date: 20051229
  Receipt Date: 20051004
  Transmission Date: 20060501
  Serious: Yes (Death, Hospitalization)
  Sender: FDA-Public Use
  Company Number: US-MERCK-0510USA02367

PATIENT
  Age: 83 Year
  Sex: Female
  Weight: 50 kg

DRUGS (8)
  1. VIOXX [Suspect]
     Indication: PAIN IN EXTREMITY
     Route: 048
     Dates: start: 20000928, end: 20010228
  2. LOPRESSOR [Concomitant]
     Route: 065
  3. PLAVIX [Concomitant]
     Route: 065
  4. BUSPAR [Concomitant]
     Route: 065
  5. ZOCOR [Concomitant]
     Route: 065
  6. PAXIL [Concomitant]
     Route: 065
  7. ZYPREXA [Concomitant]
     Route: 065
  8. SORBITOL [Concomitant]
     Route: 065

REACTIONS (1)
  - CEREBROVASCULAR ACCIDENT [None]
